FAERS Safety Report 13014262 (Version 1)
Quarter: 2016Q4

REPORT INFORMATION
  Report Type: Spontaneous
  Country: ES (occurrence: ES)
  Receive Date: 20161209
  Receipt Date: 20161209
  Transmission Date: 20170207
  Serious: Yes (Other)
  Sender: FDA-Public Use
  Company Number: PHHY2016ES165669

PATIENT

DRUGS (4)
  1. EUTIROX [Concomitant]
     Active Substance: LEVOTHYROXINE SODIUM
     Indication: THYROID DISORDER
     Dosage: 125 MG, QD
     Route: 065
  2. AFINITOR [Suspect]
     Active Substance: EVEROLIMUS
     Indication: NEOPLASM MALIGNANT
     Dosage: 10 MG, QD
     Route: 065
  3. SOMAVERT [Suspect]
     Active Substance: PEGVISOMANT
     Indication: ACROMEGALY
     Dosage: UNK UNK, QW
     Route: 058
     Dates: start: 200609
  4. SOMATULINE AUTOGEL [Concomitant]
     Active Substance: LANREOTIDE ACETATE
     Indication: ACROMEGALY
     Dosage: 120 MG, UNK (EVERY 28)
     Route: 065

REACTIONS (9)
  - Ocular neoplasm [Not Recovered/Not Resolved]
  - Rheumatoid arthritis [Unknown]
  - Transaminases increased [Unknown]
  - Second primary malignancy [Unknown]
  - Blood glucose increased [Not Recovered/Not Resolved]
  - Neoplasm progression [Recovering/Resolving]
  - Hepatic neoplasm [Not Recovered/Not Resolved]
  - Blood cholesterol increased [Not Recovered/Not Resolved]
  - Inappropriate schedule of drug administration [Unknown]
